FAERS Safety Report 8155928-6 (Version None)
Quarter: 2012Q1

REPORT INFORMATION
  Report Type: 
  Country: None (occurrence: None)
  Receive Date: 20120216
  Receipt Date: 20120203
  Transmission Date: 20120608
  Serious: Yes (Hospitalization)
  Sender: FDA-Public Use
  Company Number: TCI2011A05431

PATIENT
  Age: 82 Year
  Sex: Male

DRUGS (12)
  1. ASPIRIN [Concomitant]
  2. HUMALOG [Concomitant]
  3. BONALON (ALENDRONATE SODIUM) [Concomitant]
  4. METFFORMIN HYDROCHLORIDE [Concomitant]
  5. ACTOS [Suspect]
     Indication: DIABETES MELLITUS
     Dosage: (15 MG, 1 IN 1 D) PER ORAL
     Route: 048
     Dates: start: 20090527, end: 20111007
  6. METGLUCO (METFORMIN HYDROCHLORIDE) [Concomitant]
  7. CRESTOR [Concomitant]
  8. LANTUS [Concomitant]
  9. SULFAMETHOXAZOLE AND TRIMETHOPRIM [Concomitant]
  10. PREDNISOLONE [Suspect]
     Indication: INTERSTITIAL LUNG DISEASE
     Dosage: 5 MG (5 MG, 1 IN 1 D) PER ORAL
     Route: 048
     Dates: start: 20070101
  11. 25MG.ALINAMIN-F SUGAR-COATED TABLETS (FURSULTIAMINE) [Concomitant]
  12. FAMOTIDINE [Concomitant]

REACTIONS (1)
  - BLADDER CANCER STAGE 0, WITH CANCER IN SITU [None]
